FAERS Safety Report 9143078 (Version 1)
Quarter: 2013Q1

REPORT INFORMATION
  Report Type: Spontaneous
  Country: VE (occurrence: VE)
  Receive Date: 20130306
  Receipt Date: 20130306
  Transmission Date: 20140127
  Serious: Yes (Other)
  Sender: FDA-Public Use
  Company Number: VE-ASTELLAS-2013US002458

PATIENT
  Age: 13 Year
  Sex: Female

DRUGS (3)
  1. PROGRAF [Suspect]
     Indication: RENAL TRANSPLANT
     Dosage: 2 MG IN THE MORNING, 1 MG AT NIGHT
     Route: 048
     Dates: start: 201211
  2. PROGRAF [Suspect]
     Indication: RENAL TRANSPLANT
     Dosage: 2 MG, Q12 HOURS
     Route: 065
  3. RAPAMUNE [Suspect]
     Indication: PRODUCT USED FOR UNKNOWN INDICATION
     Dosage: 2 MG, UID/QD
     Route: 065
     Dates: start: 201208

REACTIONS (4)
  - Drug ineffective [Unknown]
  - Glomerulonephritis [Recovering/Resolving]
  - Kidney transplant rejection [Recovering/Resolving]
  - Proteinuria [Unknown]
